FAERS Safety Report 5130808-9 (Version None)
Quarter: 2006Q4

REPORT INFORMATION
  Report Type: 
  Country: None (occurrence: None)
  Receive Date: 20061017
  Receipt Date: 20061017
  Transmission Date: 20070319
  Serious: Yes (Hospitalization)
  Sender: FDA-Public Use
  Company Number: None

PATIENT
  Age: 7 Year
  Sex: Male
  Weight: 22.6799 kg

DRUGS (4)
  1. CONCERTA [Suspect]
     Indication: ATTENTION DEFICIT/HYPERACTIVITY DISORDER
     Dosage: 18 MG ONCE DAILY
     Route: 048
  2. BENADRYL [Concomitant]
  3. IBUPROFEN [Concomitant]
  4. ADDERALL 10 [Concomitant]

REACTIONS (4)
  - AGITATION [None]
  - DISORIENTATION [None]
  - HALLUCINATION, VISUAL [None]
  - WRONG DRUG ADMINISTERED [None]
